FAERS Safety Report 24978665 (Version 2)
Quarter: 2025Q1

REPORT INFORMATION
  Report Type: Report from Study
  Country: DZ (occurrence: DZ)
  Receive Date: 20250218
  Receipt Date: 20250306
  Transmission Date: 20250409
  Serious: Yes (Other)
  Sender: EMD SERONO INC
  Company Number: DZ-Merck Healthcare KGaA-2025007099

PATIENT
  Age: 34 Year
  Sex: Female

DRUGS (1)
  1. REBIF [Suspect]
     Active Substance: INTERFERON BETA-1A
     Indication: Multiple sclerosis
     Dates: start: 20170207, end: 20250104

REACTIONS (3)
  - Premature delivery [Recovered/Resolved]
  - Live birth [Recovered/Resolved]
  - Maternal exposure during pregnancy [Recovered/Resolved]

NARRATIVE: CASE EVENT DATE: 20221024
